FAERS Safety Report 18243832 (Version 3)
Quarter: 2020Q4

REPORT INFORMATION
  Report Type: Report from Study
  Country: FR (occurrence: FR)
  Receive Date: 20200908
  Receipt Date: 20201005
  Transmission Date: 20210113
  Serious: Yes (Death, Hospitalization, Other)
  Sender: FDA-Public Use
  Company Number: FR-BRISTOL-MYERS SQUIBB COMPANY-BMS-2020-071390

PATIENT
  Age: 51 Year
  Sex: Female
  Weight: 67 kg

DRUGS (7)
  1. PARACETAMOL [Concomitant]
     Active Substance: ACETAMINOPHEN
     Indication: PAIN
     Dosage: 4 GRAM
     Route: 042
     Dates: end: 20200923
  2. ALPRAZOLAM. [Concomitant]
     Active Substance: ALPRAZOLAM
     Indication: DEPRESSION
     Dosage: 0.5 MILLIGRAM
     Route: 048
     Dates: end: 20200923
  3. TRAMADOL. [Concomitant]
     Active Substance: TRAMADOL
     Indication: PAIN
     Dosage: UNK
     Route: 042
     Dates: end: 20200923
  4. SERTRALINE [Concomitant]
     Active Substance: SERTRALINE HYDROCHLORIDE
     Indication: DEPRESSION
     Dosage: 50 MILLIGRAM
     Route: 048
     Dates: end: 20200923
  5. APIXABAN [Suspect]
     Active Substance: APIXABAN
     Indication: EMBOLISM VENOUS
     Dosage: 5MG TWICE ADAY OR 2.5 MG TWICE A DAY ACCORDING TO THE RANDOMIZATION GROUP
     Route: 048
     Dates: start: 20200206, end: 20200830
  6. PANTOPRAZOLE [Concomitant]
     Active Substance: PANTOPRAZOLE
     Indication: GASTRITIS PROPHYLAXIS
     Dosage: 40 MILLIGRAM
     Route: 042
     Dates: end: 20200923
  7. LEVOTHYROXINE. [Concomitant]
     Active Substance: LEVOTHYROXINE
     Indication: HYPOTHYROIDISM
     Dosage: 125 MICROGRAM
     Route: 048
     Dates: end: 20200923

REACTIONS (1)
  - Metastases to central nervous system [Fatal]

NARRATIVE: CASE EVENT DATE: 20200830
